FAERS Safety Report 9160135 (Version 2)
Quarter: 2013Q3

REPORT INFORMATION
  Report Type: Spontaneous
  Country: US (occurrence: US)
  Receive Date: 20130313
  Receipt Date: 20130828
  Transmission Date: 20140515
  Serious: Yes (Hospitalization, Other)
  Sender: FDA-Public Use
  Company Number: US-ROCHE-1086913

PATIENT
  Age: 32 Year
  Sex: Female
  Weight: 87.17 kg

DRUGS (3)
  1. ACCUTANE [Suspect]
     Indication: ACNE
     Route: 065
     Dates: start: 199803, end: 199806
  2. ACCUTANE [Suspect]
     Route: 048
     Dates: start: 20000822, end: 20000929
  3. ACCUTANE [Suspect]
     Route: 048
     Dates: start: 20020208, end: 20020414

REACTIONS (5)
  - Crohn^s disease [Unknown]
  - Iron deficiency anaemia [Unknown]
  - Inflammatory bowel disease [Unknown]
  - Depression [Unknown]
  - Rectal polyp [Unknown]
